FAERS Safety Report 21393087 (Version 2)
Quarter: 2022Q4

REPORT INFORMATION
  Report Type: Spontaneous
  Country: US (occurrence: None)
  Receive Date: 20220929
  Receipt Date: 20221010
  Transmission Date: 20230112
  Serious: No
  Sender: FDA-Public Use
  Company Number: 2022A303537

PATIENT
  Age: 72 Year
  Sex: Female

DRUGS (1)
  1. SYMBICORT [Suspect]
     Active Substance: BUDESONIDE\FORMOTEROL FUMARATE DIHYDRATE
     Indication: Dyspnoea
     Dosage: 160/4.5 MCG, 120 INHALATIONS, TWO PUFFS TWICE A DAY
     Route: 055
     Dates: start: 2021

REACTIONS (7)
  - Psychomotor hyperactivity [Not Recovered/Not Resolved]
  - Product use issue [Unknown]
  - Incorrect dose administered by device [Unknown]
  - Drug dose omission by device [Not Recovered/Not Resolved]
  - Intentional device misuse [Unknown]
  - Wrong technique in product usage process [Unknown]
  - Drug delivery system issue [Unknown]

NARRATIVE: CASE EVENT DATE: 20210101
